FAERS Safety Report 8307707 (Version 2)
Quarter: 2014Q1

REPORT INFORMATION
  Report Type: Spontaneous
  Country: US (occurrence: US)
  Receive Date: 20111222
  Receipt Date: 20140115
  Transmission Date: 20141002
  Serious: Yes (Hospitalization, Other)
  Sender: FDA-Public Use
  Company Number: US-BAYER-2011-121509

PATIENT
  Age: 27 Year
  Sex: Female

DRUGS (2)
  1. YASMIN [Suspect]
     Dosage: UNK
     Dates: start: 2001, end: 2007
  2. YAZ [Suspect]
     Dosage: UNK
     Dates: start: 2001, end: 2007

REACTIONS (7)
  - Gallbladder disorder [None]
  - Cholecystitis chronic [None]
  - Post cholecystectomy syndrome [None]
  - Anhedonia [None]
  - Anxiety [None]
  - Injury [None]
  - Pain [None]
